FAERS Safety Report 7562916-7 (Version None)
Quarter: 2011Q2

REPORT INFORMATION
  Report Type: 
  Country: None (occurrence: None)
  Receive Date: 20110621
  Receipt Date: 20110621
  Transmission Date: 20111010
  Serious: No
  Sender: FDA-Public Use
  Company Number: None

PATIENT
  Age: 76 Year
  Sex: Male
  Weight: 88.6 kg

DRUGS (1)
  1. EFFIENT [Suspect]
     Indication: CORONARY ARTERIAL STENT INSERTION
     Dosage: 10 MG EVERY DAY PO
     Route: 048
     Dates: start: 20101215

REACTIONS (4)
  - URTICARIA [None]
  - PRURITUS [None]
  - RASH [None]
  - THROMBOCYTOPENIA [None]
